FAERS Safety Report 11189216 (Version 3)
Quarter: 2015Q3

REPORT INFORMATION
  Report Type: Spontaneous
  Country: US (occurrence: US)
  Receive Date: 20150615
  Receipt Date: 20150724
  Transmission Date: 20151125
  Serious: Yes (Death, Hospitalization)
  Sender: FDA-Public Use
  Company Number: US-UNITED THERAPEUTICS-UNT-2015-006207

PATIENT
  Age: 53 Year
  Sex: Female
  Weight: 75.28 kg

DRUGS (3)
  1. REMODULIN [Suspect]
     Active Substance: TREPROSTINIL
     Indication: PULMONARY ARTERIAL HYPERTENSION
     Dosage: 0.0809 ?G/KG, CONTINUING
     Route: 041
     Dates: start: 20140718
  2. ADEMPAS [Concomitant]
     Active Substance: RIOCIGUAT
     Indication: PRODUCT USED FOR UNKNOWN INDICATION
  3. REMODULIN [Suspect]
     Active Substance: TREPROSTINIL
     Dosage: 0.0809 ?G/KG, CONTINUING
     Route: 041
     Dates: start: 20141112

REACTIONS (4)
  - Device related infection [Unknown]
  - Sepsis [Unknown]
  - Death [Fatal]
  - Endocarditis [Unknown]

NARRATIVE: CASE EVENT DATE: 201505
